FAERS Safety Report 15241522 (Version 1)
Quarter: 2018Q3

REPORT INFORMATION
  Report Type: Spontaneous
  Country: US (occurrence: US)
  Receive Date: 20180712
  Receipt Date: 20180712
  Transmission Date: 20181010
  Serious: No
  Sender: FDA-Public Use
  Company Number: None

PATIENT
  Age: 20 Year
  Sex: Female

DRUGS (1)
  1. MAKENA [Suspect]
     Active Substance: HYDROXYPROGESTERONE CAPROATE
     Dosage: ?          OTHER FREQUENCY:OTHER;?
     Route: 058
     Dates: start: 20180618, end: 20180712

REACTIONS (4)
  - Injection site mass [None]
  - Loss of personal independence in daily activities [None]
  - Injection site pain [None]
  - Impaired work ability [None]

NARRATIVE: CASE EVENT DATE: 20180712
